FAERS Safety Report 6277475-9 (Version None)
Quarter: 2009Q3

REPORT INFORMATION
  Report Type: 
  Country: None (occurrence: None)
  Receive Date: 20090722
  Receipt Date: 20090710
  Transmission Date: 20100115
  Serious: Yes (Other)
  Sender: FDA-Public Use
  Company Number: CO-PFIZER INC-2009240355

PATIENT
  Age: 65 Year

DRUGS (2)
  1. SUTENT [Suspect]
     Indication: RENAL CANCER
     Dosage: 50 MG, DAILY, EVERY DAY, TDD 50 MG
     Route: 048
     Dates: start: 20090630
  2. VERAPAMIL [Concomitant]
     Dosage: 80 MG, UNK

REACTIONS (5)
  - COUGH [None]
  - EYELID OEDEMA [None]
  - FATIGUE [None]
  - SWELLING FACE [None]
  - TUMOUR PAIN [None]
